FAERS Safety Report 11022381 (Version 1)
Quarter: 2015Q2

REPORT INFORMATION
  Report Type: Spontaneous
  Country: US (occurrence: US)
  Receive Date: 20150413
  Receipt Date: 20150413
  Transmission Date: 20150821
  Serious: Yes (Other)
  Sender: FDA-Public Use
  Company Number: US-ASTELLAS-2014US005584

PATIENT
  Age: 65 Year
  Sex: Male

DRUGS (1)
  1. PROGRAF [Suspect]
     Active Substance: TACROLIMUS\TACROLIMUS ANHYDROUS
     Indication: LIVER TRANSPLANT
     Dosage: UNK UNK, UNKNOWN FREQ.
     Route: 065
     Dates: start: 20130507, end: 20130607

REACTIONS (3)
  - Headache [Recovered/Resolved]
  - Neurotoxicity [Unknown]
  - Malaise [Unknown]

NARRATIVE: CASE EVENT DATE: 20130524
